FAERS Safety Report 6197971-2 (Version None)
Quarter: 2009Q2

REPORT INFORMATION
  Report Type: 
  Country: None (occurrence: None)
  Receive Date: 20090521
  Receipt Date: 20090513
  Transmission Date: 20091009
  Serious: Yes (Other)
  Sender: FDA-Public Use
  Company Number: D0061690A

PATIENT
  Sex: Male

DRUGS (2)
  1. LAMOTRIGINE (RATIOPHARM) [Suspect]
     Dosage: 25MG PER DAY
     Route: 048
     Dates: start: 20090501
  2. ANTI-DIABETIC MEDICATION [Concomitant]
     Route: 065

REACTIONS (1)
  - NEUROPATHY PERIPHERAL [None]
